FAERS Safety Report 13515566 (Version 2)
Quarter: 2017Q2

REPORT INFORMATION
  Report Type: Spontaneous
  Country: US (occurrence: US)
  Receive Date: 20170504
  Receipt Date: 20170620
  Transmission Date: 20170830
  Serious: No
  Sender: FDA-Public Use
  Company Number: US-ACTELION-A-NJ2017-153460

PATIENT
  Age: 45 Year
  Sex: Male

DRUGS (1)
  1. VENTAVIS [Suspect]
     Active Substance: ILOPROST
     Indication: PULMONARY ARTERIAL HYPERTENSION
     Dosage: 20 MCG/ML 6 TREATMENTS/DAY
     Route: 055
     Dates: start: 20170221

REACTIONS (4)
  - Incorrect drug administration duration [Recovered/Resolved]
  - Accidental exposure to product [Unknown]
  - No adverse event [Unknown]
  - Skin irritation [Not Recovered/Not Resolved]

NARRATIVE: CASE EVENT DATE: 20170419
